FAERS Safety Report 11267039 (Version 4)
Quarter: 2015Q4

REPORT INFORMATION
  Report Type: Spontaneous
  Country: US (occurrence: US)
  Receive Date: 20150713
  Receipt Date: 20151022
  Transmission Date: 20160304
  Serious: Yes (Hospitalization, Other)
  Sender: FDA-Public Use
  Company Number: US-JNJFOC-20150614460

PATIENT
  Sex: Male

DRUGS (8)
  1. IMBRUVICA [Suspect]
     Active Substance: IBRUTINIB
     Indication: MANTLE CELL LYMPHOMA
     Route: 048
     Dates: start: 20140730, end: 20150607
  2. IMBRUVICA [Suspect]
     Active Substance: IBRUTINIB
     Indication: MANTLE CELL LYMPHOMA
     Route: 048
     Dates: start: 20150612, end: 2015
  3. VITAMIN D [Concomitant]
     Active Substance: CHOLECALCIFEROL
  4. KEPPRA [Concomitant]
     Active Substance: LEVETIRACETAM
  5. VITAMIN E (TOCOPHERYL ACETATE) [Concomitant]
  6. ZOLOFT [Concomitant]
     Active Substance: SERTRALINE HYDROCHLORIDE
  7. TESTOSTERONE PROPIONATE. [Concomitant]
     Active Substance: TESTOSTERONE PROPIONATE
  8. IMBRUVICA [Suspect]
     Active Substance: IBRUTINIB
     Indication: MANTLE CELL LYMPHOMA
     Route: 048
     Dates: start: 20150730

REACTIONS (9)
  - Atrial fibrillation [Unknown]
  - Arthralgia [Unknown]
  - Renal failure [Recovering/Resolving]
  - Vomiting [Unknown]
  - Feeling abnormal [Unknown]
  - Fatigue [Unknown]
  - Heart rate increased [Unknown]
  - Anxiety [Unknown]
  - Adverse event [Unknown]

NARRATIVE: CASE EVENT DATE: 2015
